FAERS Safety Report 14452882 (Version 1)
Quarter: 2018Q1

REPORT INFORMATION
  Report Type: Spontaneous
  Country: US (occurrence: US)
  Receive Date: 20180129
  Receipt Date: 20180129
  Transmission Date: 20180509
  Serious: No
  Sender: FDA-Public Use
  Company Number: US-TEVA-791259USA

PATIENT
  Sex: Male

DRUGS (1)
  1. METOPROLOL TARTRATE. [Suspect]
     Active Substance: METOPROLOL TARTRATE
     Indication: ATRIAL FIBRILLATION
     Dates: start: 20170622

REACTIONS (5)
  - Vision blurred [Unknown]
  - Restlessness [Unknown]
  - Diplopia [Not Recovered/Not Resolved]
  - Confusional state [Unknown]
  - Insomnia [Unknown]

NARRATIVE: CASE EVENT DATE: 201707
